FAERS Safety Report 7511743-5 (Version None)
Quarter: 2011Q2

REPORT INFORMATION
  Report Type: 
  Country: None (occurrence: None)
  Receive Date: 20110531
  Receipt Date: 20110517
  Transmission Date: 20111010
  Serious: Yes (Hospitalization)
  Sender: FDA-Public Use
  Company Number: JP-ELI_LILLY_AND_COMPANY-JP201104000023

PATIENT
  Age: 80 Year
  Sex: Male

DRUGS (3)
  1. TS 1 [Concomitant]
     Indication: LUNG NEOPLASM MALIGNANT
     Dosage: 4 DF, UNK
     Route: 048
     Dates: start: 20110302, end: 20110311
  2. FORTEO [Suspect]
     Indication: OSTEOPOROSIS
     Dosage: 20 UG, QD
     Route: 058
     Dates: start: 20110228, end: 20110321
  3. PREDNISOLONE [Concomitant]
     Indication: RHEUMATOID ARTHRITIS
     Dosage: 2 DF, UNK
     Route: 048

REACTIONS (2)
  - TOXIC SKIN ERUPTION [None]
  - STOMATITIS [None]
